FAERS Safety Report 9109458 (Version 2)
Quarter: 2013Q3

REPORT INFORMATION
  Report Type: Report from Study
  Country: CA (occurrence: CA)
  Receive Date: 20130222
  Receipt Date: 20130930
  Transmission Date: 20140515
  Serious: Yes (Hospitalization)
  Sender: FDA-Public Use
  Company Number: CA-JNJFOC-20130208900

PATIENT
  Age: 68 Year
  Sex: Female
  Weight: 99.79 kg

DRUGS (2)
  1. REMICADE [Suspect]
     Indication: BEHCET^S SYNDROME
     Route: 042
     Dates: start: 20071220
  2. REMICADE [Suspect]
     Indication: RHEUMATOID ARTHRITIS
     Route: 042
     Dates: start: 20071220

REACTIONS (5)
  - Cystitis [Unknown]
  - Sepsis [Unknown]
  - Aortic aneurysm [Unknown]
  - Knee arthroplasty [Unknown]
  - Off label use [Unknown]
